APPROVED DRUG PRODUCT: EMBOLEX
Active Ingredient: DIHYDROERGOTAMINE MESYLATE; HEPARIN SODIUM; LIDOCAINE HYDROCHLORIDE
Strength: 0.5MG/0.5ML;2,500 UNITS/0.5ML;5.33MG/0.5ML
Dosage Form/Route: INJECTABLE;INJECTION
Application: N018885 | Product #001
Applicant: NOVARTIS PHARMACEUTICALS CORP
Approved: Nov 30, 1984 | RLD: No | RS: No | Type: DISCN